FAERS Safety Report 5120282-0 (Version None)
Quarter: 2006Q4

REPORT INFORMATION
  Report Type: 
  Country: None (occurrence: None)
  Receive Date: 20061004
  Receipt Date: 20060822
  Transmission Date: 20070319
  Serious: Yes (Life-Threatening, Hospitalization)
  Sender: FDA-Public Use
  Company Number: AT-AMGEN-UK189827

PATIENT
  Sex: Male

DRUGS (4)
  1. PALIFERMIN [Suspect]
     Indication: MUCOSAL INFLAMMATION
     Route: 042
     Dates: start: 20060714, end: 20060804
  2. VOLTAREN [Concomitant]
     Route: 065
  3. NEXIUM [Concomitant]
     Route: 065
  4. HYDROMORPHONE HYDROCHLORIDE [Concomitant]
     Route: 065

REACTIONS (5)
  - CATHETER SITE INFECTION [None]
  - IATROGENIC INJURY [None]
  - LYMPHADENITIS [None]
  - PANCREATITIS NECROTISING [None]
  - PORTAL VEIN THROMBOSIS [None]
